FAERS Safety Report 15289642 (Version 1)
Quarter: 2018Q3

REPORT INFORMATION
  Report Type: Spontaneous
  Country: GB (occurrence: GB)
  Receive Date: 20180817
  Receipt Date: 20180817
  Transmission Date: 20181010
  Serious: Yes (Other)
  Sender: FDA-Public Use
  Company Number: GB-TEVA-2018-GB-942985

PATIENT
  Age: 52 Year
  Sex: Female

DRUGS (4)
  1. PRIMULA [Concomitant]
     Route: 065
  2. LINSEED [Concomitant]
     Route: 065
  3. ONDANSETRON [Suspect]
     Active Substance: ONDANSETRON
     Indication: PROPHYLAXIS OF NAUSEA AND VOMITING
     Dosage: 4 MILLIGRAM
     Route: 042
  4. OLIVE OIL [Concomitant]
     Active Substance: OLIVE OIL
     Route: 065

REACTIONS (4)
  - Petit mal epilepsy [Recovered/Resolved]
  - Muscle twitching [Recovered/Resolved]
  - Partial seizures [Recovered/Resolved]
  - Facial paralysis [Recovered/Resolved]
